FAERS Safety Report 18463844 (Version 4)
Quarter: 2020Q4

REPORT INFORMATION
  Report Type: Spontaneous
  Country: GB (occurrence: GB)
  Receive Date: 20201104
  Receipt Date: 20201124
  Transmission Date: 20210114
  Serious: Yes (Hospitalization, Other)
  Sender: FDA-Public Use
  Company Number: GB-MYLANLABS-2020M1091500

PATIENT
  Age: 30 Year
  Sex: Male
  Weight: 250 kg

DRUGS (1)
  1. CLOZARIL [Suspect]
     Active Substance: CLOZAPINE
     Indication: SCHIZOPHRENIA
     Dosage: 200MG+25MG+225MG
     Route: 048
     Dates: start: 20150714, end: 20201025

REACTIONS (7)
  - White blood cell count decreased [Recovered/Resolved]
  - Tachycardia [Recovering/Resolving]
  - COVID-19 pneumonia [Recovering/Resolving]
  - Lymphocyte count decreased [Unknown]
  - Mental impairment [Recovering/Resolving]
  - Neutrophil count decreased [Recovered/Resolved]
  - Catatonia [Unknown]

NARRATIVE: CASE EVENT DATE: 20201025
